FAERS Safety Report 8770598 (Version 2)
Quarter: 2013Q4

REPORT INFORMATION
  Report Type: Report from Study
  Country: US (occurrence: US)
  Receive Date: 20120906
  Receipt Date: 20131106
  Transmission Date: 20140711
  Serious: Yes (Hospitalization)
  Sender: FDA-Public Use
  Company Number: US-009507513-1209USA001418

PATIENT
  Age: 10 Year
  Sex: Male
  Weight: 39.6 kg

DRUGS (15)
  1. ELSPAR [Suspect]
     Indication: PRECURSOR T-LYMPHOBLASTIC LYMPHOMA/LEUKAEMIA
     Dosage: UNK UNK, CYCLICAL
     Route: 030
     Dates: start: 20120511, end: 20120802
  2. VELCADE [Suspect]
     Indication: PRECURSOR T-LYMPHOBLASTIC LYMPHOMA/LEUKAEMIA
     Dosage: 1.3 MG/M2, CYCLICAL
     Route: 042
     Dates: start: 20120511, end: 20120625
  3. ARA-C [Suspect]
     Indication: PRECURSOR T-LYMPHOBLASTIC LYMPHOMA/LEUKAEMIA
     Dosage: REGIMEN #1 3000 MG/M2, CYCLICAL
     Route: 042
     Dates: start: 20120511, end: 20120802
  4. ARA-C [Suspect]
     Dosage: REGIMEN #2
     Route: 039
  5. ARA-C [Suspect]
     Dosage: REGIMEN #3
  6. VINCRISTINE SULFATE [Suspect]
     Indication: PRECURSOR T-LYMPHOBLASTIC LYMPHOMA/LEUKAEMIA
     Dosage: 1.5 MG/M2, CYCLICAL
     Route: 042
     Dates: start: 20120511
  7. DOXORUBICIN [Suspect]
     Indication: PRECURSOR T-LYMPHOBLASTIC LYMPHOMA/LEUKAEMIA
     Dosage: 60 MG/M2, CYCLICAL
     Route: 042
     Dates: start: 20120511
  8. PREDNISONE [Suspect]
     Indication: PRECURSOR T-LYMPHOBLASTIC LYMPHOMA/LEUKAEMIA
     Dosage: 20 MG/M2, CYCLICAL
     Route: 048
     Dates: start: 20120511
  9. PEGASPARGASE [Suspect]
     Indication: PRECURSOR T-LYMPHOBLASTIC LYMPHOMA/LEUKAEMIA
     Dosage: 2500 IU, CYCLICAL
     Dates: start: 20120511
  10. METHOTREXATE [Suspect]
     Indication: PRECURSOR T-LYMPHOBLASTIC LYMPHOMA/LEUKAEMIA
     Dosage: REGIMEN #1
     Route: 037
     Dates: start: 20120511
  11. METHOTREXATE [Suspect]
     Dosage: 500 MG/M2, CYCLICAL
     Route: 042
     Dates: start: 20120511
  12. METHOTREXATE [Suspect]
     Dosage: 4500 MG/M2, CYCLICAL
     Dates: start: 20120511
  13. HYDROCORTISONE [Suspect]
     Indication: PRECURSOR T-LYMPHOBLASTIC LYMPHOMA/LEUKAEMIA
     Dosage: UNK, CYCLICAL
     Dates: start: 20120511
  14. ETOPOSIDE [Suspect]
     Indication: PRECURSOR T-LYMPHOBLASTIC LYMPHOMA/LEUKAEMIA
     Dosage: 100 MG/M2, CYCLICAL
     Route: 042
     Dates: start: 20120511
  15. CYCLOPHOSPHAMIDE [Suspect]
     Indication: PRECURSOR T-LYMPHOBLASTIC LYMPHOMA/LEUKAEMIA
     Dosage: 440 MG/M2, CYCLICAL
     Route: 042
     Dates: start: 20120511

REACTIONS (3)
  - Colitis [Recovering/Resolving]
  - Lung infection [Recovering/Resolving]
  - Urinary tract infection [Recovering/Resolving]
